FAERS Safety Report 17228976 (Version 1)
Quarter: 2019Q4

REPORT INFORMATION
  Report Type: Spontaneous
  Country: US (occurrence: US)
  Receive Date: 20191210
  Receipt Date: 20191210
  Transmission Date: 20200122
  Serious: No
  Sender: FDA-Public Use
  Company Number: None

PATIENT
  Age: 54 Year
  Sex: Female

DRUGS (1)
  1. RASUVO [Suspect]
     Active Substance: METHOTREXATE SODIUM
     Indication: PSORIATIC ARTHROPATHY
     Dosage: ?          OTHER DOSE:17.5MG;?
     Route: 058
     Dates: start: 201908

REACTIONS (3)
  - Psoriasis [None]
  - Therapeutic product effect incomplete [None]
  - Arthralgia [None]

NARRATIVE: CASE EVENT DATE: 20191210
